FAERS Safety Report 23191477 (Version 1)
Quarter: 2023Q4

REPORT INFORMATION
  Report Type: Spontaneous
  Country: FR (occurrence: FR)
  Receive Date: 20231116
  Receipt Date: 20231116
  Transmission Date: 20240109
  Serious: Yes (Other)
  Sender: FDA-Public Use
  Company Number: FR-Merz Pharmaceuticals GmbH-23-03615

PATIENT
  Age: 50 Year
  Sex: Female

DRUGS (7)
  1. XEOMIN [Suspect]
     Active Substance: INCOBOTULINUMTOXINA
     Indication: Bruxism
     Route: 030
     Dates: start: 20230323, end: 20230323
  2. XEOMIN [Suspect]
     Active Substance: INCOBOTULINUMTOXINA
     Route: 030
     Dates: start: 20230323, end: 20230323
  3. XEOMIN [Suspect]
     Active Substance: INCOBOTULINUMTOXINA
  4. BOTULINUM TOXIN NOS [Concomitant]
     Active Substance: BOTULINUM TOXIN NOS
     Indication: Bruxism
  5. EFFEXOR [Concomitant]
     Active Substance: VENLAFAXINE HYDROCHLORIDE
     Dosage: 187.5 MG
  6. XANAX [Concomitant]
     Active Substance: ALPRAZOLAM
  7. BILASTINE [Concomitant]
     Active Substance: BILASTINE

REACTIONS (2)
  - Injection site cellulitis [Recovered/Resolved]
  - Off label use [Unknown]

NARRATIVE: CASE EVENT DATE: 20230323
